FAERS Safety Report 6089000-6 (Version None)
Quarter: 2009Q1

REPORT INFORMATION
  Report Type: 
  Country: None (occurrence: None)
  Receive Date: 20090224
  Receipt Date: 20090213
  Transmission Date: 20090719
  Serious: Yes (Other)
  Sender: FDA-Public Use
  Company Number: US-JNJFOC-20090203691

PATIENT
  Age: 46 Year
  Sex: Male

DRUGS (6)
  1. PREZISTA [Suspect]
     Indication: HIV INFECTION
     Dosage: 2X 300 MG
     Route: 048
  2. INTELENCE [Suspect]
     Indication: HIV INFECTION
     Dosage: 2X 100 MG
     Route: 048
  3. TRUVADA [Suspect]
     Indication: HIV INFECTION
  4. NORVIR [Suspect]
     Indication: HIV INFECTION
  5. REYATAZ [Suspect]
     Indication: HIV INFECTION
  6. ISENTRESS [Suspect]
     Indication: HIV INFECTION

REACTIONS (4)
  - FATIGUE [None]
  - HYPERTENSION [None]
  - LIPODYSTROPHY ACQUIRED [None]
  - OSTEONECROSIS [None]
